FAERS Safety Report 5279425-0 (Version None)
Quarter: 2007Q1

REPORT INFORMATION
  Report Type: 
  Country: None (occurrence: None)
  Receive Date: 20070328
  Receipt Date: 20070321
  Transmission Date: 20070707
  Serious: Yes (Other)
  Sender: FDA-Public Use
  Company Number: US-SHR-US-2007-006409

PATIENT
  Age: 26 Year
  Sex: Female
  Weight: 119 kg

DRUGS (2)
  1. MIRENA [Suspect]
     Indication: CONTRACEPTION
     Dosage: 20 A?G/DAY, CONT
     Route: 015
     Dates: end: 20060810
  2. SYNTHROID [Concomitant]

REACTIONS (4)
  - IUCD COMPLICATION [None]
  - NORMAL NEWBORN [None]
  - PREGNANCY WITH CONTRACEPTIVE DEVICE [None]
  - UMBILICAL HERNIA [None]
